FAERS Safety Report 4769041-9 (Version None)
Quarter: 2005Q3

REPORT INFORMATION
  Report Type: 
  Country: None (occurrence: None)
  Receive Date: 20050913
  Receipt Date: 20050902
  Transmission Date: 20060218
  Serious: Yes (Hospitalization)
  Sender: FDA-Public Use
  Company Number: HQWYE265406SEP05

PATIENT
  Sex: Female

DRUGS (2)
  1. EFFEXOR XR [Suspect]
     Indication: DEPRESSION
     Dosage: SEE IMAGE
     Route: 048
     Dates: end: 20050101
  2. EFFEXOR [Suspect]
     Indication: DEPRESSION
     Dosage: 37.5 MG 1X PER 1 DAY ORAL
     Route: 048
     Dates: start: 20050101

REACTIONS (5)
  - AGITATION [None]
  - DRUG INEFFECTIVE [None]
  - DRUG WITHDRAWAL SYNDROME [None]
  - HEADACHE [None]
  - SUICIDAL IDEATION [None]
